FAERS Safety Report 19278370 (Version 1)
Quarter: 2021Q2

REPORT INFORMATION
  Report Type: Spontaneous
  Country: US (occurrence: US)
  Receive Date: 20210520
  Receipt Date: 20210520
  Transmission Date: 20210717
  Serious: Yes (Life-Threatening, Hospitalization, Other)
  Sender: FDA-Public Use
  Company Number: US-PFIZER INC-2021518215

PATIENT
  Age: 23 Year
  Sex: Male

DRUGS (1)
  1. VERAPAMIL HCL [Suspect]
     Active Substance: VERAPAMIL HYDROCHLORIDE
     Dosage: 20 DF, 240 MG TABLETS, SUSTAINED RELEASE
     Route: 048

REACTIONS (10)
  - Pulmonary hypertension [Recovered/Resolved]
  - Acute respiratory distress syndrome [Recovered/Resolved]
  - Right ventricular dysfunction [Recovered/Resolved]
  - Cardiac arrest [Recovered/Resolved]
  - Seizure [Recovered/Resolved]
  - Nodal rhythm [Recovered/Resolved]
  - Overdose [Unknown]
  - Atrial fibrillation [Recovered/Resolved]
  - Cardiac failure congestive [Recovered/Resolved]
  - Bradycardia [Recovered/Resolved]
